FAERS Safety Report 8343891-4 (Version None)
Quarter: 2012Q2

REPORT INFORMATION
  Report Type: 
  Country: None (occurrence: None)
  Receive Date: 20120503
  Receipt Date: 20120215
  Transmission Date: 20120825
  Serious: Yes (Other)
  Sender: FDA-Public Use
  Company Number: 2012SP008751

PATIENT
  Age: 66 Year
  Sex: Male
  Weight: 58 kg

DRUGS (9)
  1. PEGINTERFERON ALFA-2B [Suspect]
     Indication: HEPATITIS C
     Dosage: 80 MCG;QW;SC
     Route: 058
  2. PEGINTERFERON ALFA-2B [Suspect]
     Indication: VIRAEMIA
     Dosage: 80 MCG;QW;SC
     Route: 058
  3. CANDESARTAN CILEXETIL [Concomitant]
  4. NIZATIDINE [Concomitant]
  5. TELAVIC (TELAPREVIR) (INVESTIGATIONAL DRUG) [Suspect]
     Indication: HEPATITIS C
     Dosage: 2250 MG;QD;PO
     Route: 048
     Dates: start: 20120130, end: 20120202
  6. TELAVIC (TELAPREVIR) (INVESTIGATIONAL DRUG) [Suspect]
     Indication: VIRAEMIA
     Dosage: 2250 MG;QD;PO
     Route: 048
     Dates: start: 20120130, end: 20120202
  7. CLARITIN [Suspect]
     Indication: PRODUCT USED FOR UNKNOWN INDICATION
     Dosage: 10 MG;QD;PO
     Route: 048
     Dates: start: 20120130
  8. REBETOL [Suspect]
     Indication: HEPATITIS C
     Dosage: 600 MG;QD;PO
     Route: 048
     Dates: start: 20120130
  9. REBETOL [Suspect]
     Indication: VIRAEMIA
     Dosage: 600 MG;QD;PO
     Route: 048
     Dates: start: 20120130

REACTIONS (4)
  - DEHYDRATION [None]
  - BLOOD URIC ACID INCREASED [None]
  - VOMITING [None]
  - RENAL DISORDER [None]
